FAERS Safety Report 22280438 (Version 1)
Quarter: 2023Q2

REPORT INFORMATION
  Report Type: Spontaneous
  Country: JP (occurrence: JP)
  Receive Date: 20230503
  Receipt Date: 20230503
  Transmission Date: 20230721
  Serious: No
  Sender: FDA-Public Use
  Company Number: JP-APIL-2313386US

PATIENT
  Age: 83 Year
  Sex: Male

DRUGS (1)
  1. ASENAPINE MALEATE [Suspect]
     Active Substance: ASENAPINE MALEATE
     Indication: Product used for unknown indication
     Dosage: UNK
     Route: 060

REACTIONS (3)
  - Cold sweat [Unknown]
  - Throat tightness [Unknown]
  - Feeling hot [Unknown]
